FAERS Safety Report 7534790-6 (Version None)
Quarter: 2011Q2

REPORT INFORMATION
  Report Type: 
  Country: None (occurrence: None)
  Receive Date: 20110609
  Receipt Date: 20080728
  Transmission Date: 20111010
  Serious: Yes (Death)
  Sender: FDA-Public Use
  Company Number: PHHY2008GB10154

PATIENT
  Sex: Male

DRUGS (1)
  1. CLOZAPINE [Suspect]
     Indication: SCHIZOPHRENIA
     Dosage: 400 MG, QD
     Dates: start: 20051007, end: 20080501

REACTIONS (4)
  - COMPLETED SUICIDE [None]
  - VOMITING [None]
  - INTENTIONAL OVERDOSE [None]
  - ALCOHOL POISONING [None]
